FAERS Safety Report 10011263 (Version 1)
Quarter: 2014Q1

REPORT INFORMATION
  Report Type: Spontaneous
  Country: DE (occurrence: None)
  Receive Date: 20140311
  Receipt Date: 20140311
  Transmission Date: 20141002
  Serious: Yes (Death)
  Sender: FDA-Public Use
  Company Number: 1402-0410

PATIENT
  Age: 89 Year
  Sex: Female

DRUGS (1)
  1. EYELEA [Suspect]
     Dates: start: 201401

REACTIONS (1)
  - Death [None]
